FAERS Safety Report 19130934 (Version 1)
Quarter: 2021Q2

REPORT INFORMATION
  Report Type: Spontaneous
  Country: US (occurrence: US)
  Receive Date: 20210413
  Receipt Date: 20210413
  Transmission Date: 20210717
  Serious: No
  Sender: FDA-Public Use
  Company Number: US-UPSHER-SMITH LABORATORIES, LLC-2020USL00323

PATIENT
  Age: 41 Year
  Sex: Female

DRUGS (13)
  1. ARMODAFINIL. [Concomitant]
     Active Substance: ARMODAFINIL
  2. METAXALONE. [Concomitant]
     Active Substance: METAXALONE
  3. LAMOTRIGINE. [Concomitant]
     Active Substance: LAMOTRIGINE
  4. MELATONIN [Concomitant]
     Active Substance: MELATONIN
  5. QUDEXY XR [Suspect]
     Active Substance: TOPIRAMATE
     Indication: MIGRAINE
     Dosage: 100 MG, 1X/DAY
     Route: 048
     Dates: start: 20200505
  6. PROPRANOLOL [Concomitant]
     Active Substance: PROPRANOLOL HYDROCHLORIDE
  7. RESTASIS [Concomitant]
     Active Substance: CYCLOSPORINE
  8. COPAXONE [Concomitant]
     Active Substance: GLATIRAMER ACETATE
  9. GABAPENTIN. [Concomitant]
     Active Substance: GABAPENTIN
  10. TRAZODONE [Concomitant]
     Active Substance: TRAZODONE HYDROCHLORIDE
  11. SERTRALINE [Concomitant]
     Active Substance: SERTRALINE HYDROCHLORIDE
  12. EMGALITY [Concomitant]
     Active Substance: GALCANEZUMAB-GNLM
  13. DEXTROAMP?AMPHETAMIN [Concomitant]

REACTIONS (1)
  - Visual perseveration [Recovered/Resolved]

NARRATIVE: CASE EVENT DATE: 202005
